FAERS Safety Report 19069320 (Version 1)
Quarter: 2021Q1

REPORT INFORMATION
  Report Type: Other
  Country: US (occurrence: US)
  Receive Date: 20210329
  Receipt Date: 20210329
  Transmission Date: 20210420
  Serious: Yes (Other)
  Sender: FDA-Public Use
  Company Number: US-NEUROCRINE BIOSCIENCES INC.-2021NBI01376

PATIENT

DRUGS (2)
  1. INGREZZA [Suspect]
     Active Substance: VALBENAZINE
     Indication: TARDIVE DYSKINESIA
     Dosage: 80 MILLIGRAM, QD
     Route: 048
     Dates: start: 20171028
  2. INGREZZA [Suspect]
     Active Substance: VALBENAZINE
     Dosage: 40 MILIGRAM, QD
     Route: 048
     Dates: start: 20171020, end: 20171027

REACTIONS (3)
  - Neck pain [Unknown]
  - Spinal operation [Recovered/Resolved]
  - Headache [Unknown]
